FAERS Safety Report 24336597 (Version 4)
Quarter: 2025Q1

REPORT INFORMATION
  Report Type: Report from Study
  Country: US (occurrence: US)
  Receive Date: 20240919
  Receipt Date: 20250305
  Transmission Date: 20250409
  Serious: Yes (Death, Hospitalization, Other)
  Sender: TAKEDA
  Company Number: US-TAKEDA-2024TUS077816

PATIENT
  Age: 56 Year
  Sex: Female

DRUGS (6)
  1. FRUQUINTINIB [Suspect]
     Active Substance: FRUQUINTINIB
     Indication: Colon cancer
  2. FRUQUINTINIB [Suspect]
     Active Substance: FRUQUINTINIB
     Dosage: 4 MILLIGRAM, QD
     Dates: start: 202406, end: 20250216
  3. CARVEDILOL [Concomitant]
     Active Substance: CARVEDILOL
  4. LISINOPRIL [Concomitant]
     Active Substance: LISINOPRIL
  5. OXYCODONE [Concomitant]
     Active Substance: OXYCODONE
  6. POTASSIUM [Concomitant]
     Active Substance: POTASSIUM

REACTIONS (6)
  - Death [Fatal]
  - Intestinal obstruction [Unknown]
  - Pain [Unknown]
  - Malaise [Unknown]
  - Product dose omission issue [Unknown]
  - Stomatitis [Recovering/Resolving]

NARRATIVE: CASE EVENT DATE: 20250216
